FAERS Safety Report 14180874 (Version 4)
Quarter: 2018Q1

REPORT INFORMATION
  Report Type: Report from Study
  Country: US (occurrence: US)
  Receive Date: 20171110
  Receipt Date: 20180115
  Transmission Date: 20180508
  Serious: No
  Sender: FDA-Public Use
  Company Number: US-JAZZ-2017-US-014341

PATIENT
  Age: 31 Year
  Sex: Female

DRUGS (2)
  1. XYREM [Suspect]
     Active Substance: SODIUM OXYBATE
     Dosage: 3 G, BID
     Route: 048
     Dates: start: 20171104
  2. XYREM [Suspect]
     Active Substance: SODIUM OXYBATE
     Indication: NARCOLEPSY
     Dosage: 2.25 G, BID
     Route: 048
     Dates: start: 20171028, end: 2017

REACTIONS (10)
  - Snoring [Unknown]
  - Pollakiuria [Not Recovered/Not Resolved]
  - Dizziness [Unknown]
  - Therapeutic response unexpected [Unknown]
  - Dyspnoea [Unknown]
  - Pre-existing condition improved [Unknown]
  - Nausea [Unknown]
  - Hypoaesthesia oral [Unknown]
  - Anxiety [Unknown]
  - Somnolence [Unknown]

NARRATIVE: CASE EVENT DATE: 2017
